FAERS Safety Report 14056071 (Version 1)
Quarter: 2017Q4

REPORT INFORMATION
  Report Type: Spontaneous
  Country: HU (occurrence: HU)
  Receive Date: 20171006
  Receipt Date: 20171006
  Transmission Date: 20180321
  Serious: Yes (Hospitalization, Other)
  Sender: FDA-Public Use
  Company Number: HU-AMGEN-HUNSP2017149245

PATIENT
  Age: 17 Year
  Sex: Female

DRUGS (1)
  1. NPLATE [Suspect]
     Active Substance: ROMIPLOSTIM
     Indication: IMMUNE THROMBOCYTOPENIC PURPURA
     Route: 065

REACTIONS (10)
  - Urine oxalate [Recovering/Resolving]
  - Anion gap increased [Recovering/Resolving]
  - Off label use [Unknown]
  - Polyuria [Recovering/Resolving]
  - Loss of consciousness [Recovering/Resolving]
  - Tachypnoea [Recovering/Resolving]
  - Platelet count increased [Recovering/Resolving]
  - Haematuria [Recovering/Resolving]
  - Metabolic acidosis [Recovering/Resolving]
  - Blood glucose decreased [Recovering/Resolving]
